FAERS Safety Report 9973958 (Version 1)
Quarter: 2014Q1

REPORT INFORMATION
  Report Type: Report from Study
  Country: US (occurrence: US)
  Receive Date: 20140306
  Receipt Date: 20140306
  Transmission Date: 20141002
  Serious: No
  Sender: FDA-Public Use
  Company Number: US-ABBVIE-13P-163-1155009-00

PATIENT
  Age: 68 Year
  Sex: Female

DRUGS (5)
  1. HUMIRA [Suspect]
     Indication: CROHN^S DISEASE
     Dates: start: 20130904
  2. UNKNOWN MEDICATION [Concomitant]
     Indication: CROHN^S DISEASE
     Dosage: REGULAR PILLS
  3. POTASSIUM [Concomitant]
     Indication: BLOOD POTASSIUM DECREASED
  4. ULTRAM [Concomitant]
     Indication: PAIN
     Dosage: ONE PILL
  5. ATIVAN [Concomitant]
     Indication: SENSORY DISTURBANCE

REACTIONS (4)
  - Weight decreased [Unknown]
  - Crohn^s disease [Unknown]
  - Sensory disturbance [Recovering/Resolving]
  - Paraesthesia [Recovering/Resolving]
